FAERS Safety Report 24745258 (Version 1)
Quarter: 2024Q4

REPORT INFORMATION
  Report Type: Spontaneous
  Country: JP (occurrence: JP)
  Receive Date: 20241217
  Receipt Date: 20241217
  Transmission Date: 20250115
  Serious: Yes (Hospitalization)
  Sender: MDD OPERATIONS
  Company Number: JP-ZAMBON-202403388COR

PATIENT
  Age: 78 Year
  Sex: Male

DRUGS (4)
  1. SAFINAMIDE [Suspect]
     Active Substance: SAFINAMIDE
     Indication: Parkinson^s disease
     Route: 048
  2. CARBIDOPA\LEVODOPA [Concomitant]
     Active Substance: CARBIDOPA\LEVODOPA
     Dosage: NOT PROVIDED
  3. ZONISAMIDE [Concomitant]
     Active Substance: ZONISAMIDE
     Dosage: NOT PROVIDED
  4. MIRAPEX [Concomitant]
     Active Substance: PRAMIPEXOLE DIHYDROCHLORIDE
     Dosage: NOT PROVIDED

REACTIONS (2)
  - Musculoskeletal stiffness [Unknown]
  - Intentional product misuse [Unknown]
